FAERS Safety Report 10550510 (Version 1)
Quarter: 2014Q4

REPORT INFORMATION
  Report Type: Spontaneous
  Country: US (occurrence: US)
  Receive Date: 20141029
  Receipt Date: 20141029
  Transmission Date: 20150529
  Serious: No
  Sender: FDA-Public Use
  Company Number: US-TEVA-493054USA

PATIENT
  Sex: Female

DRUGS (1)
  1. PROVIGIL [Suspect]
     Active Substance: MODAFINIL
     Dates: start: 20131011

REACTIONS (1)
  - Blood pressure abnormal [Unknown]
